FAERS Safety Report 25653460 (Version 1)
Quarter: 2025Q3

REPORT INFORMATION
  Report Type: Spontaneous
  Country: PR (occurrence: PR)
  Receive Date: 20250807
  Receipt Date: 20250807
  Transmission Date: 20251020
  Serious: No
  Sender: BIOGEN
  Company Number: PR-BIOGEN-2025BI01319484

PATIENT
  Age: 70 Year
  Sex: Female
  Weight: 69.916 kg

DRUGS (1)
  1. TECFIDERA [Suspect]
     Active Substance: DIMETHYL FUMARATE
     Indication: Multiple sclerosis
     Route: 050
     Dates: start: 202408, end: 202507

REACTIONS (3)
  - White blood cell count decreased [Not Recovered/Not Resolved]
  - Sleep disorder [Unknown]
  - Fatigue [Unknown]

NARRATIVE: CASE EVENT DATE: 20250701
